FAERS Safety Report 4289526-1 (Version None)
Quarter: 2004Q1

REPORT INFORMATION
  Report Type: 
  Country: None (occurrence: None)
  Receive Date: 20040126
  Receipt Date: 20030828
  Transmission Date: 20041129
  Serious: No
  Sender: FDA-Public Use
  Company Number: USA030535843

PATIENT
  Age: 80 Year
  Sex: Female
  Weight: 84 kg

DRUGS (7)
  1. FORTEO [Suspect]
     Indication: OSTEOPOROSIS
     Dates: start: 20030403
  2. DILTIAZEM [Concomitant]
  3. LASIX [Concomitant]
  4. LOPRESSOR [Concomitant]
  5. PLAVIX [Concomitant]
  6. VIOXX [Concomitant]
  7. CHILDREN'S ASPIRIN (ACETYLSALICYLIC ACID) [Concomitant]

REACTIONS (1)
  - BLOOD GLUCOSE INCREASED [None]
